FAERS Safety Report 6772343-8 (Version None)
Quarter: 2010Q2

REPORT INFORMATION
  Report Type: 
  Country: None (occurrence: None)
  Receive Date: 20100616
  Receipt Date: 20090915
  Transmission Date: 20101027
  Serious: No
  Sender: FDA-Public Use
  Company Number: US-ASTRAZENECA-2009SE13279

PATIENT
  Age: 64 Year
  Sex: Male
  Weight: 62.6 kg

DRUGS (9)
  1. PULMICORT FLEXHALER [Suspect]
     Route: 055
     Dates: start: 20090701
  2. LISINOPRIL [Concomitant]
  3. ATENOLOL [Concomitant]
  4. PRAVASTATIN [Concomitant]
  5. FLOMAX [Concomitant]
  6. PRILOSEC OTC [Concomitant]
  7. TUMS [Concomitant]
  8. CENTRUM [Concomitant]
  9. AMPICILLIN [Concomitant]
     Indication: HYPERSENSITIVITY

REACTIONS (2)
  - ALOPECIA [None]
  - STRESS AT WORK [None]
